FAERS Safety Report 5858021-8 (Version None)
Quarter: 2008Q3

REPORT INFORMATION
  Report Type: 
  Country: None (occurrence: None)
  Receive Date: 20080826
  Receipt Date: 20080818
  Transmission Date: 20090109
  Serious: Yes (Other)
  Sender: FDA-Public Use
  Company Number: US-BAYER-200828460NA

PATIENT
  Age: 58 Year
  Sex: Male
  Weight: 116 kg

DRUGS (3)
  1. CIPRO [Suspect]
     Indication: CYSTITIS
     Route: 048
     Dates: start: 20080501
  2. LISINOPRIL [Concomitant]
     Indication: BLOOD PRESSURE MANAGEMENT
  3. HYDROCHLOROTHIAZIDE [Concomitant]

REACTIONS (1)
  - TENDON RUPTURE [None]
